FAERS Safety Report 5389236-3 (Version None)
Quarter: 2007Q3

REPORT INFORMATION
  Report Type: 
  Country: None (occurrence: None)
  Receive Date: 20070717
  Receipt Date: 20070712
  Transmission Date: 20080115
  Serious: Yes (Life-Threatening)
  Sender: FDA-Public Use
  Company Number: A0662239A

PATIENT
  Age: 56 Year
  Sex: Male

DRUGS (3)
  1. AVANDAMET [Suspect]
     Dosage: .5TAB PER DAY
     Route: 048
     Dates: start: 20061003, end: 20070617
  2. LANTUS [Concomitant]
  3. VERAPAMIL [Concomitant]

REACTIONS (5)
  - CARDIAC FAILURE CONGESTIVE [None]
  - OEDEMA PERIPHERAL [None]
  - ORTHOPNOEA [None]
  - RALES [None]
  - RENAL FAILURE [None]
